FAERS Safety Report 5040364-1 (Version None)
Quarter: 2006Q2

REPORT INFORMATION
  Report Type: 
  Country: None (occurrence: None)
  Receive Date: 20060630
  Receipt Date: 20060629
  Transmission Date: 20061013
  Serious: Yes (Other)
  Sender: FDA-Public Use
  Company Number: 200613417EU

PATIENT
  Age: 59 Year
  Sex: Female

DRUGS (4)
  1. NICODERM [Suspect]
     Indication: SMOKING CESSATION THERAPY
     Dosage: 21MG PER DAY
     Route: 062
     Dates: start: 20060611, end: 20060613
  2. MORPHINE [Suspect]
     Indication: DRUG USE FOR UNKNOWN INDICATION
     Dates: start: 20060613
  3. ROSUVASTATIN [Concomitant]
     Dates: start: 20060501
  4. TELMISARTAN [Concomitant]
     Dates: start: 20051201

REACTIONS (2)
  - DRUG INTERACTION [None]
  - DYSPNOEA [None]
